FAERS Safety Report 5519205-1 (Version None)
Quarter: 2007Q4

REPORT INFORMATION
  Report Type: 
  Country: None (occurrence: None)
  Receive Date: 20071114
  Receipt Date: 20071114
  Transmission Date: 20080405
  Serious: Yes (Hospitalization)
  Sender: FDA-Public Use
  Company Number: None

PATIENT
  Sex: Male
  Weight: 97 kg

DRUGS (8)
  1. SUNITINIB [Suspect]
     Indication: RENAL CANCER METASTATIC
     Dosage: 50 MG DAILY PO
     Route: 048
     Dates: start: 20070530, end: 20071101
  2. DOCUSATE SODIUM [Concomitant]
  3. BENZONATATE [Concomitant]
  4. GUAIFENESIN [Concomitant]
  5. ESOMEPRAZOLE MAGNESIUM [Concomitant]
  6. ATENOLOL [Concomitant]
  7. M.V.I. [Concomitant]
  8. TESSALON [Concomitant]

REACTIONS (4)
  - HYPONATRAEMIA [None]
  - MENTAL STATUS CHANGES [None]
  - PAIN [None]
  - PYREXIA [None]
